FAERS Safety Report 6394347-X (Version None)
Quarter: 2009Q4

REPORT INFORMATION
  Report Type: 
  Country: None (occurrence: None)
  Receive Date: 20091006
  Receipt Date: 20090928
  Transmission Date: 20100525
  Serious: Yes (Hospitalization)
  Sender: FDA-Public Use
  Company Number: SPV1-2009-01913

PATIENT
  Age: 64 Year
  Sex: Female

DRUGS (1)
  1. FOSRENOL [Suspect]
     Dosage: 250 MG, 2X/DAY:BID,
     Dates: end: 20080901

REACTIONS (1)
  - INTESTINAL OBSTRUCTION [None]
